FAERS Safety Report 9160397 (Version 5)
Quarter: 2013Q2

REPORT INFORMATION
  Report Type: Report from Study
  Country: CA (occurrence: CA)
  Receive Date: 20130313
  Receipt Date: 20130417
  Transmission Date: 20140414
  Serious: Yes (Death, Hospitalization, Other)
  Sender: FDA-Public Use
  Company Number: CA-ROCHE-1201134

PATIENT
  Age: 74 Year
  Sex: Male
  Weight: 115.2 kg

DRUGS (9)
  1. XELODA [Suspect]
     Indication: ADENOCARCINOMA
     Route: 048
     Dates: start: 20130305, end: 201303
  2. OXYCODONE [Suspect]
     Indication: PAIN
     Route: 048
     Dates: end: 20130306
  3. ALDACTONE [Concomitant]
  4. ASACOL [Concomitant]
  5. DEXAMETHASONE [Concomitant]
  6. ONDANSETRON [Concomitant]
  7. STEMETIL [Concomitant]
  8. SERAX (CANADA) [Concomitant]
  9. STATEX (CANADA) [Concomitant]
     Indication: PAIN

REACTIONS (12)
  - Restless legs syndrome [Not Recovered/Not Resolved]
  - White blood cell count increased [Not Recovered/Not Resolved]
  - Blood sodium decreased [Unknown]
  - Blood calcium decreased [Unknown]
  - Blood magnesium decreased [Unknown]
  - Fluid overload [Unknown]
  - Disease progression [Unknown]
  - Fall [Unknown]
  - Hyperhidrosis [Unknown]
  - Constipation [Unknown]
  - Candida infection [Unknown]
  - Death [Fatal]
